FAERS Safety Report 6003027-1 (Version None)
Quarter: 2008Q4

REPORT INFORMATION
  Report Type: 
  Country: None (occurrence: None)
  Receive Date: 20081212
  Receipt Date: 20081204
  Transmission Date: 20090506
  Serious: No
  Sender: FDA-Public Use
  Company Number: 2008-187390-NL

PATIENT
  Age: 3 Year
  Sex: Female

DRUGS (3)
  1. ROCURONIUM BROMIDE [Suspect]
     Indication: ANAESTHESIA
     Dosage: 15 MG ONCE, INTRAVENOUS (NOS)
     Route: 042
     Dates: start: 20081125, end: 20081125
  2. THIAMYLAL SODIUM) [Suspect]
     Indication: ANAESTHESIA
     Dosage: INTRAVENOUS (NOS)
     Route: 042
     Dates: start: 20081125, end: 20081125
  3. SEVOFLURANE [Suspect]
     Indication: ANAESTHESIA
     Dosage: RESPIRATORY (INHALATION)
     Route: 055
     Dates: start: 20081125, end: 20081125

REACTIONS (2)
  - ERYTHEMA [None]
  - URTICARIA [None]
